FAERS Safety Report 5133143-8 (Version None)
Quarter: 2006Q4

REPORT INFORMATION
  Report Type: 
  Country: None (occurrence: None)
  Receive Date: 20061017
  Receipt Date: 20061004
  Transmission Date: 20070319
  Serious: Yes (Disabling)
  Sender: FDA-Public Use
  Company Number: 2006121931

PATIENT
  Age: 57 Year
  Weight: 80 kg

DRUGS (4)
  1. CABERGOLINE [Suspect]
     Indication: DEMENTIA
     Dosage: 1 MG (1 MG, 1 IN 1 D), ORAL
     Route: 048
     Dates: start: 20041210, end: 20060601
  2. BUMETANIDE [Concomitant]
     Indication: CARDIAC FAILURE
  3. RIVASTIGMINE TARTRATE [Concomitant]
  4. ZOFRAN [Concomitant]

REACTIONS (2)
  - AORTIC VALVE INCOMPETENCE [None]
  - ATRIAL FIBRILLATION [None]
